FAERS Safety Report 24314129 (Version 1)
Quarter: 2024Q3

REPORT INFORMATION
  Report Type: Spontaneous
  Country: CA (occurrence: CA)
  Receive Date: 20240912
  Receipt Date: 20240912
  Transmission Date: 20241017
  Serious: Yes (Hospitalization, Other)
  Sender: BOEHRINGER INGELHEIM
  Company Number: CA-BoehringerIngelheim-2024-BI-050982

PATIENT
  Age: 54 Year
  Sex: Male

DRUGS (1)
  1. JARDIANCE [Suspect]
     Active Substance: EMPAGLIFLOZIN
     Indication: Product used for unknown indication

REACTIONS (6)
  - Nausea [Unknown]
  - Blood glucose increased [Unknown]
  - Glucose urine present [Unknown]
  - Urine ketone body present [Unknown]
  - Muscular weakness [Unknown]
  - Abdominal pain [Unknown]
